FAERS Safety Report 7816952-3 (Version None)
Quarter: 2011Q4

REPORT INFORMATION
  Report Type: 
  Country: None (occurrence: None)
  Receive Date: 20111017
  Receipt Date: 20111001
  Transmission Date: 20120403
  Serious: No
  Sender: FDA-Public Use
  Company Number: US-B.I. PHARMACEUTICALS,INC./RIDGEFIELD-2011-BP-23305BP

PATIENT
  Sex: Female

DRUGS (3)
  1. ZANTAC 150 [Suspect]
     Indication: DYSPEPSIA
     Route: 048
     Dates: start: 20110101
  2. VITAMIN TAB [Concomitant]
     Indication: VITAMIN SUPPLEMENTATION
  3. CARBAMAZEPINE [Concomitant]
     Indication: TRIGEMINAL NEURALGIA

REACTIONS (4)
  - DYSPNOEA [None]
  - PRURITUS [None]
  - INTENTIONAL DRUG MISUSE [None]
  - WHEEZING [None]
